FAERS Safety Report 13734311 (Version 4)
Quarter: 2017Q4

REPORT INFORMATION
  Report Type: Spontaneous
  Country: MY (occurrence: MY)
  Receive Date: 20170708
  Receipt Date: 20171103
  Transmission Date: 20180320
  Serious: Yes (Death, Hospitalization, Other)
  Sender: FDA-Public Use
  Company Number: MY-ARIAD-2017MY008489

PATIENT
  Sex: Male

DRUGS (1)
  1. ICLUSIG [Suspect]
     Active Substance: PONATINIB
     Indication: CHRONIC MYELOID LEUKAEMIA
     Dosage: 45 MG, QD
     Route: 048
     Dates: start: 20170403

REACTIONS (6)
  - Sepsis [Fatal]
  - Pneumonia [Fatal]
  - Neutropenic sepsis [Unknown]
  - Acute lymphocytic leukaemia recurrent [Unknown]
  - Chronic myeloid leukaemia transformation [Unknown]
  - Neoplasm progression [Unknown]
